FAERS Safety Report 25818861 (Version 5)
Quarter: 2025Q4

REPORT INFORMATION
  Report Type: Report from Study
  Country: US (occurrence: US)
  Receive Date: 20250918
  Receipt Date: 20251120
  Transmission Date: 20260117
  Serious: Yes (Hospitalization)
  Sender: MALLINCKRODT
  Company Number: US-MALLINCKRODT-MNK202505551

PATIENT
  Age: 68 Year
  Sex: Female
  Weight: 195 kg

DRUGS (2)
  1. CORTICOTROPIN [Suspect]
     Active Substance: CORTICOTROPIN
     Indication: Sarcoidosis of lymph node
     Dosage: 80 UNITS
     Route: 058
     Dates: start: 20250904
  2. CORTICOTROPIN [Suspect]
     Active Substance: CORTICOTROPIN
     Indication: Sarcoidosis

REACTIONS (8)
  - Pulmonary embolism [Unknown]
  - Thrombosis [Unknown]
  - Back pain [Recovering/Resolving]
  - Contusion [Unknown]
  - Joint swelling [Unknown]
  - Hypertension [Unknown]
  - Injection site discharge [Unknown]
  - Injection site haemorrhage [Unknown]

NARRATIVE: CASE EVENT DATE: 20250101
